FAERS Safety Report 14816145 (Version 5)
Quarter: 2018Q2

REPORT INFORMATION
  Report Type: Spontaneous
  Country: GB (occurrence: GB)
  Receive Date: 20180426
  Receipt Date: 20180612
  Transmission Date: 20180711
  Serious: Yes (Life-Threatening, Hospitalization, Other)
  Sender: FDA-Public Use
  Company Number: PHHY2018GB072178

PATIENT
  Age: 67 Year
  Sex: Female

DRUGS (13)
  1. PROMETHAZINE [Suspect]
     Active Substance: PROMETHAZINE\PROMETHAZINE HYDROCHLORIDE
     Indication: PRODUCT USED FOR UNKNOWN INDICATION
     Dosage: 10 MG, UNK
     Route: 065
  2. BISOPROLOL [Concomitant]
     Active Substance: BISOPROLOL
     Indication: PRODUCT USED FOR UNKNOWN INDICATION
     Dosage: 2.5 MG, UNK
     Route: 065
  3. PHENERGAN [Suspect]
     Active Substance: PROMETHAZINE HYDROCHLORIDE
     Indication: PRODUCT SUBSTITUTION
  4. ZIMOVANE [Concomitant]
     Active Substance: ZOPICLONE
     Indication: INSOMNIA
     Dosage: 4 DF, QD (4 UG\LITRE)
     Route: 065
  5. SPIRONOLACTONE. [Concomitant]
     Active Substance: SPIRONOLACTONE
     Indication: PRODUCT USED FOR UNKNOWN INDICATION
     Route: 065
  6. FUROSEMIDE. [Concomitant]
     Active Substance: FUROSEMIDE
     Indication: BLOOD PRESSURE MEASUREMENT
  7. FUROSEMIDE. [Concomitant]
     Active Substance: FUROSEMIDE
     Indication: HYPERTENSION
     Dosage: 40 MG, UNK
     Route: 065
  8. PERINDOPRIL [Concomitant]
     Active Substance: PERINDOPRIL
     Indication: PRODUCT USED FOR UNKNOWN INDICATION
     Route: 065
  9. OMEPRAZOLE. [Suspect]
     Active Substance: OMEPRAZOLE
     Indication: PRODUCT USED FOR UNKNOWN INDICATION
     Dosage: 2 DF, QD (2 UG/LITRE)
     Route: 048
  10. PHENERGAN [Suspect]
     Active Substance: PROMETHAZINE HYDROCHLORIDE
     Indication: INSOMNIA
     Dosage: 10 MG, BID
     Route: 065
     Dates: start: 20180112, end: 20180113
  11. IVABRADINE [Concomitant]
     Active Substance: IVABRADINE
     Indication: CARDIAC DISORDER
     Dosage: 5 MG, UNK
     Route: 065
  12. PROMETHAZINE [Suspect]
     Active Substance: PROMETHAZINE\PROMETHAZINE HYDROCHLORIDE
     Dosage: 20 MG, QD
     Route: 065
     Dates: start: 20180112, end: 20180113
  13. ZIMOVANE [Concomitant]
     Active Substance: ZOPICLONE
     Indication: SEDATIVE THERAPY
     Dosage: 2 DF, QD (2 UG\LITRE)
     Route: 065
     Dates: start: 201801

REACTIONS (33)
  - Syncope [Recovered/Resolved]
  - Hot flush [Recovered/Resolved]
  - Dysuria [Recovered/Resolved]
  - Heart rate increased [Recovered/Resolved]
  - Disorientation [Unknown]
  - Suicidal ideation [Unknown]
  - Dizziness [Recovered/Resolved]
  - Confusional state [Recovered/Resolved]
  - Cardiac disorder [Recovered/Resolved]
  - Disorientation [Recovered/Resolved]
  - Restlessness [Recovered/Resolved]
  - Heart rate increased [Recovering/Resolving]
  - Eye disorder [Recovering/Resolving]
  - Photosensitivity reaction [Recovered/Resolved]
  - Nightmare [Recovered/Resolved]
  - Tremor [Unknown]
  - Unevaluable event [Recovered/Resolved]
  - Dry mouth [Recovered/Resolved]
  - Vision blurred [Recovered/Resolved]
  - Loss of control of legs [Recovered/Resolved]
  - Decreased appetite [Recovered/Resolved]
  - Tremor [Recovered/Resolved]
  - Fear [Recovering/Resolving]
  - Mental disorder [Recovering/Resolving]
  - Malaise [Recovered/Resolved]
  - Heart rate increased [Unknown]
  - Memory impairment [Recovering/Resolving]
  - Syncope [Recovered/Resolved]
  - Psychiatric symptom [Recovering/Resolving]
  - Disturbance in attention [Recovering/Resolving]
  - Hypoaesthesia [Unknown]
  - Suicidal ideation [Recovered/Resolved]
  - Palpitations [Recovering/Resolving]

NARRATIVE: CASE EVENT DATE: 20180113
